FAERS Safety Report 9959056 (Version 1)
Quarter: 2014Q1

REPORT INFORMATION
  Report Type: Spontaneous
  Country: US (occurrence: None)
  Receive Date: 20140228
  Receipt Date: 20140228
  Transmission Date: 20141002
  Serious: Yes (Other)
  Sender: FDA-Public Use
  Company Number: None

PATIENT
  Age: 65 Year
  Sex: Male
  Weight: 106.6 kg

DRUGS (6)
  1. ATORVASTATIN [Suspect]
     Indication: BLOOD CHOLESTEROL INCREASED
     Route: 048
     Dates: start: 20120606, end: 20130201
  2. LIPITOR [Concomitant]
  3. LISINIPRIL [Concomitant]
  4. NISOLDIPINE [Concomitant]
  5. BABY ASPIRIN [Concomitant]
  6. FLAX SEED OIL [Concomitant]

REACTIONS (3)
  - Drug ineffective [None]
  - Product substitution issue [None]
  - Blood cholesterol increased [None]
